FAERS Safety Report 5975595-7 (Version None)
Quarter: 2008Q4

REPORT INFORMATION
  Report Type: 
  Country: None (occurrence: None)
  Receive Date: 20081202
  Receipt Date: 20081120
  Transmission Date: 20090506
  Serious: Yes (Hospitalization)
  Sender: FDA-Public Use
  Company Number: FR-WYE-G02616308

PATIENT
  Sex: Male

DRUGS (3)
  1. TAZOCILLINE [Suspect]
     Route: 042
     Dates: start: 20080608, end: 20080612
  2. TAZOCILLINE [Suspect]
     Dosage: UNKNOWN; ^ADAPTED DOSE REGIMEN^
     Route: 042
     Dates: start: 20080101
  3. AMIKLIN [Suspect]
     Route: 030
     Dates: start: 20080610, end: 20080611

REACTIONS (4)
  - ANTIBIOTIC LEVEL ABOVE THERAPEUTIC [None]
  - BLOOD CREATINE INCREASED [None]
  - CONDITION AGGRAVATED [None]
  - CONVULSION [None]
